FAERS Safety Report 13159839 (Version 1)
Quarter: 2017Q1

REPORT INFORMATION
  Report Type: Report from Study
  Country: CO (occurrence: CO)
  Receive Date: 20170127
  Receipt Date: 20170127
  Transmission Date: 20170428
  Serious: Yes (Death)
  Sender: FDA-Public Use
  Company Number: PHHY2017CO012164

PATIENT
  Sex: Male

DRUGS (1)
  1. MYFORTIC [Suspect]
     Active Substance: MYCOPHENOLATE SODIUM
     Indication: RENAL TRANSPLANT
     Dosage: UNK
     Route: 048
     Dates: start: 20160401

REACTIONS (1)
  - Death [Fatal]
